FAERS Safety Report 9848662 (Version 1)
Quarter: 2014Q1

REPORT INFORMATION
  Report Type: Spontaneous
  Country: US (occurrence: US)
  Receive Date: 20140128
  Receipt Date: 20140128
  Transmission Date: 20141002
  Serious: Yes (Other)
  Sender: FDA-Public Use
  Company Number: US-SA-2014SA010302

PATIENT
  Sex: Female

DRUGS (2)
  1. LANTUS [Suspect]
     Dosage: DOSE:22 UNIT(S)
     Route: 058
  2. HUMALOG [Suspect]
     Dosage: 68 TO 74 UNITS BEFORE EVERY MEAL
     Route: 065

REACTIONS (6)
  - Shock hypoglycaemic [Recovered/Resolved]
  - Musculoskeletal stiffness [Recovered/Resolved]
  - Loss of consciousness [Recovered/Resolved]
  - Haemorrhage in pregnancy [Unknown]
  - Foetal growth restriction [Recovered/Resolved]
  - Exposure during pregnancy [Unknown]
